FAERS Safety Report 8539285-9 (Version None)
Quarter: 2012Q3

REPORT INFORMATION
  Report Type: 
  Country: None (occurrence: None)
  Receive Date: 20120726
  Receipt Date: 20110720
  Transmission Date: 20120928
  Serious: No
  Sender: FDA-Public Use
  Company Number: US-ASTRAZENECA-2011SE43530

PATIENT
  Age: 38 Year
  Sex: Male
  Weight: 136.1 kg

DRUGS (9)
  1. INDERAL [Concomitant]
     Dates: start: 20090921
  2. DSS GELCAPS [Concomitant]
     Dosage: 250-500 MG
     Dates: start: 20090921
  3. SEROQUEL [Suspect]
     Dosage: 200 TO 600 MG
     Route: 048
     Dates: start: 20070706, end: 20091014
  4. INVEGA [Concomitant]
     Dosage: 6-12MG DAILY
     Route: 048
     Dates: start: 20090921
  5. GEODON [Concomitant]
     Dosage: 40 TO 80 MG
     Dates: start: 20090921
  6. CELEXA [Concomitant]
     Dates: start: 20090921
  7. ZYPREXA [Concomitant]
     Dates: end: 20070927
  8. CITALOPRAM HYDROBROMIDE [Concomitant]
     Dosage: 10 TO 20 MG TABLET AT NIGHT
     Dates: start: 20091014
  9. ATIVAN [Concomitant]
     Dates: start: 20090921

REACTIONS (9)
  - CONSTIPATION [None]
  - BLOOD CHOLESTEROL INCREASED [None]
  - METABOLIC SYNDROME [None]
  - DIABETES MELLITUS [None]
  - HYPERLIPIDAEMIA [None]
  - LIPIDS INCREASED [None]
  - BLOOD TRIGLYCERIDES INCREASED [None]
  - HYPERCHOLESTEROLAEMIA [None]
  - OBESITY [None]
